FAERS Safety Report 14931436 (Version 1)
Quarter: 2018Q2

REPORT INFORMATION
  Report Type: Spontaneous
  Country: FR (occurrence: FR)
  Receive Date: 20180524
  Receipt Date: 20180524
  Transmission Date: 20180711
  Serious: Yes (Other)
  Sender: FDA-Public Use
  Company Number: FR-MERCK KGAA-2048374

PATIENT
  Age: 50 Year
  Sex: Female

DRUGS (1)
  1. NOVOTHYROX [Suspect]
     Active Substance: LEVOTHYROXINE SODIUM
     Indication: PRODUCT USED FOR UNKNOWN INDICATION

REACTIONS (18)
  - Fatigue [None]
  - Visual impairment [None]
  - Impaired work ability [None]
  - Insomnia [None]
  - Headache [None]
  - Asthenia [None]
  - Somnolence [None]
  - Myalgia [None]
  - Social avoidant behaviour [None]
  - Alopecia [None]
  - Loss of consciousness [None]
  - Vertigo [None]
  - Disturbance in attention [None]
  - Amnesia [None]
  - Stress [None]
  - Fear [None]
  - Intervertebral disc protrusion [None]
  - Cervicobrachial syndrome [None]

NARRATIVE: CASE EVENT DATE: 20170802
